FAERS Safety Report 6027244-X (Version None)
Quarter: 2008Q4

REPORT INFORMATION
  Report Type: 
  Country: None (occurrence: None)
  Receive Date: 20081231
  Receipt Date: 20081231
  Transmission Date: 20090506
  Serious: Yes (Other)
  Sender: FDA-Public Use
  Company Number: None

PATIENT
  Sex: Female
  Weight: 49.8957 kg

DRUGS (2)
  1. EFFEXOR [Suspect]
     Indication: ANXIETY
     Dosage: 1X DAILY PO
     Route: 048
     Dates: start: 20081213, end: 20081228
  2. EFFEXOR [Suspect]
     Indication: DEPRESSION
     Dosage: 1X DAILY PO
     Route: 048
     Dates: start: 20081213, end: 20081228

REACTIONS (12)
  - AGITATION [None]
  - CONFUSIONAL STATE [None]
  - CONVULSION [None]
  - FATIGUE [None]
  - FEELING ABNORMAL [None]
  - FOOD AVERSION [None]
  - INSOMNIA [None]
  - MUSCLE TIGHTNESS [None]
  - PARAESTHESIA [None]
  - TONGUE BITING [None]
  - TREMOR [None]
  - VISUAL IMPAIRMENT [None]
